FAERS Safety Report 17955908 (Version 1)
Quarter: 2020Q2

REPORT INFORMATION
  Report Type: Spontaneous
  Country: US (occurrence: US)
  Receive Date: 20200629
  Receipt Date: 20200629
  Transmission Date: 20200714
  Serious: Yes (Other)
  Sender: FDA-Public Use
  Company Number: US-PFIZER INC-2020244689

PATIENT
  Age: 47 Year
  Sex: Female

DRUGS (3)
  1. SOMAVERT [Suspect]
     Active Substance: PEGVISOMANT
     Indication: PRECOCIOUS PUBERTY
  2. SOMAVERT [Suspect]
     Active Substance: PEGVISOMANT
     Indication: ALBRIGHT^S DISEASE
  3. SOMAVERT [Suspect]
     Active Substance: PEGVISOMANT
     Indication: ACROMEGALY
     Dosage: 20 MG
     Route: 058
     Dates: start: 20190201

REACTIONS (4)
  - Injection site bruising [Unknown]
  - Product dose omission [Unknown]
  - Arthralgia [Unknown]
  - Hip fracture [Unknown]
